FAERS Safety Report 23707979 (Version 1)
Quarter: 2024Q2

REPORT INFORMATION
  Report Type: Spontaneous
  Country: KR (occurrence: KR)
  Receive Date: 20240404
  Receipt Date: 20240404
  Transmission Date: 20240716
  Serious: Yes (Hospitalization)
  Sender: FDA-Public Use
  Company Number: KR-BRISTOL-MYERS SQUIBB COMPANY-2024-052330

PATIENT
  Age: 53 Year
  Sex: Male
  Weight: 80 kg

DRUGS (5)
  1. NIVOLUMAB [Suspect]
     Active Substance: NIVOLUMAB
     Indication: Product used for unknown indication
     Dosage: Q3W
     Route: 042
     Dates: start: 20230830, end: 20230830
  2. CISPLATIN [Suspect]
     Active Substance: CISPLATIN
     Indication: Product used for unknown indication
     Dosage: QW
     Route: 042
     Dates: start: 20230830, end: 20230905
  3. GEMCITABINE [Suspect]
     Active Substance: GEMCITABINE
     Indication: Product used for unknown indication
     Dosage: QW
     Route: 042
     Dates: start: 20230830, end: 20230905
  4. TRASTUZUMAB [Suspect]
     Active Substance: TRASTUZUMAB
     Indication: Product used for unknown indication
     Dosage: Q3W
     Route: 042
     Dates: start: 20230830, end: 20230830
  5. TEICONIN [Concomitant]
     Indication: Product used for unknown indication
     Dosage: BID
     Route: 042
     Dates: start: 20230910

REACTIONS (2)
  - Pyrexia [Unknown]
  - Escherichia infection [Unknown]

NARRATIVE: CASE EVENT DATE: 20230910
